FAERS Safety Report 5711624-3 (Version None)
Quarter: 2008Q2

REPORT INFORMATION
  Report Type: 
  Country: None (occurrence: None)
  Receive Date: 20080416
  Receipt Date: 20080403
  Transmission Date: 20081010
  Serious: Yes (Other)
  Sender: FDA-Public Use
  Company Number: BEPFB-S-20080001

PATIENT
  Sex: Female

DRUGS (3)
  1. NAVELBINE [Suspect]
     Indication: BREAST CANCER
  2. HERCEPTIN [Suspect]
     Indication: BREAST CANCER
  3. ZANTAC [Concomitant]

REACTIONS (3)
  - GENERALISED OEDEMA [None]
  - OEDEMA PERIPHERAL [None]
  - SWELLING FACE [None]
